FAERS Safety Report 16011201 (Version 1)
Quarter: 2019Q1

REPORT INFORMATION
  Report Type: Report from Study
  Country: HU (occurrence: HU)
  Receive Date: 20190227
  Receipt Date: 20190227
  Transmission Date: 20190418
  Serious: Yes (Hospitalization)
  Sender: FDA-Public Use
  Company Number: HU-ROCHE-2271082

PATIENT
  Age: 52 Year
  Sex: Male
  Weight: 84 kg

DRUGS (12)
  1. DEPAKIN CHRONO [Concomitant]
     Active Substance: VALPROIC ACID
     Indication: EPILEPSY
     Route: 048
  2. PANTOPRAZOL [Concomitant]
     Active Substance: PANTOPRAZOLE SODIUM
     Indication: DYSPEPSIA
     Route: 065
     Dates: start: 20181228
  3. MAXIDEX [Concomitant]
     Active Substance: DEXAMETHASONE
     Indication: EYE INFLAMMATION
     Dosage: 3 U (UNIT)
     Route: 047
     Dates: start: 20180813
  4. ALKCEMA [Concomitant]
     Indication: DERMATITIS ACNEIFORM
     Route: 065
     Dates: start: 20181107
  5. MILURIT [Concomitant]
     Active Substance: ALLOPURINOL
     Route: 048
  6. ATEZOLIZUMAB. [Suspect]
     Active Substance: ATEZOLIZUMAB
     Indication: MALIGNANT MELANOMA
     Dosage: DATE OF MOST RECENT DOSE OF ATEZOLIZUMAB PRIOR TO AE AND SAE ONSET 13/FEB/2019 840 MG
     Route: 042
     Dates: start: 20180801
  7. ZINERYT [Concomitant]
     Indication: DERMATITIS ACNEIFORM
     Dosage: 1 U (UNIT)
     Route: 062
     Dates: start: 20180815
  8. MEDROL [Concomitant]
     Active Substance: METHYLPREDNISOLONE
     Indication: DERMATITIS
     Route: 048
     Dates: start: 20181228
  9. LETROX [Concomitant]
     Active Substance: LEVOTHYROXINE SODIUM
     Indication: HYPOTHYROIDISM
     Route: 065
     Dates: start: 20181228
  10. COBIMETINIB. [Suspect]
     Active Substance: COBIMETINIB
     Indication: MALIGNANT MELANOMA
     Dosage: DATE OF MOST RECENT DOSE OF COBIMETINIB PRIOR TO AE AND SAE ONSET 14/FEB/2019 40MG
     Route: 048
     Dates: start: 20180801
  11. BISOPROLOL [Concomitant]
     Active Substance: BISOPROLOL
     Indication: TACHYCARDIA
     Route: 048
  12. COSOPT [Concomitant]
     Active Substance: DORZOLAMIDE HYDROCHLORIDE\TIMOLOL MALEATE
     Dosage: 1 U (UNIT)
     Route: 047
     Dates: start: 20180813

REACTIONS (1)
  - Erysipelas [Not Recovered/Not Resolved]

NARRATIVE: CASE EVENT DATE: 20190219
